FAERS Safety Report 5311517-X (Version None)
Quarter: 2007Q2

REPORT INFORMATION
  Report Type: 
  Country: None (occurrence: None)
  Receive Date: 20070430
  Receipt Date: 20070418
  Transmission Date: 20071010
  Serious: Yes (Death, Other)
  Sender: FDA-Public Use
  Company Number: FR-GLAXOSMITHKLINE-B0461841A

PATIENT
  Age: 75 Year
  Sex: Male
  Weight: 80 kg

DRUGS (5)
  1. ARIXTRA [Suspect]
     Dosage: 7.5MG PER DAY
     Route: 058
     Dates: start: 20070225, end: 20070301
  2. TAREG [Concomitant]
     Dosage: 80MG IN THE MORNING
     Route: 048
  3. PERMIXON [Concomitant]
     Indication: PROSTATISM
     Dosage: 1UNIT TWICE PER DAY
     Route: 048
  4. LASIX [Concomitant]
     Dosage: 40MG IN THE MORNING
     Route: 048
  5. DIFFU K [Concomitant]

REACTIONS (7)
  - BRAIN HERNIATION [None]
  - CONVULSION [None]
  - DISTURBANCE IN ATTENTION [None]
  - FALL [None]
  - OFF LABEL USE [None]
  - SUBDURAL HAEMATOMA [None]
  - SYNCOPE [None]
